FAERS Safety Report 24610545 (Version 2)
Quarter: 2025Q2

REPORT INFORMATION
  Report Type: Report from Study
  Country: US (occurrence: US)
  Receive Date: 20241112
  Receipt Date: 20250630
  Transmission Date: 20250717
  Serious: No
  Sender: SUNOVION
  Company Number: US-SUMITOMO PHARMA SWITZERLAND GMBH-2024SPA004902

PATIENT

DRUGS (1)
  1. ORGOVYX [Suspect]
     Active Substance: RELUGOLIX
     Indication: Prostate cancer
     Dosage: 120 MG, QD
     Route: 048
     Dates: start: 20241010

REACTIONS (6)
  - Lethargy [Unknown]
  - Blood potassium increased [Unknown]
  - Andropause [Unknown]
  - Arthralgia [Unknown]
  - Asthenia [Unknown]
  - Incorrect dose administered [Unknown]
